FAERS Safety Report 4798315-0 (Version None)
Quarter: 2005Q4

REPORT INFORMATION
  Report Type: 
  Country: None (occurrence: None)
  Receive Date: 20051014
  Receipt Date: 20050623
  Transmission Date: 20060501
  Serious: Yes (Hospitalization)
  Sender: FDA-Public Use
  Company Number: HQWYE688324JUN05

PATIENT
  Sex: Female
  Weight: 43 kg

DRUGS (14)
  1. ENBREL [Suspect]
     Indication: RHEUMATOID ARTHRITIS
     Route: 058
     Dates: start: 20030212, end: 20050601
  2. ENBREL [Suspect]
     Route: 058
     Dates: start: 20050601, end: 20050615
  3. MAGNESIUM OXIDE [Suspect]
     Indication: CONSTIPATION PROPHYLAXIS
     Dosage: UNKNOWN DOSE, AS NEEDED
     Route: 048
     Dates: start: 20050601, end: 20050618
  4. PANTOTHENIC ACID [Suspect]
     Indication: CONSTIPATION PROPHYLAXIS
     Dosage: UNKNOWN DOSE, AS NEEDED
     Route: 048
     Dates: start: 20050615, end: 20050618
  5. LOXONIN [Concomitant]
     Indication: RHEUMATOID ARTHRITIS
     Route: 048
     Dates: start: 19890421
  6. SELBEX [Concomitant]
     Indication: PROPHYLAXIS
     Route: 048
     Dates: start: 20000207
  7. KETOPROFEN [Concomitant]
     Indication: RHEUMATOID ARTHRITIS
     Dosage: UNKNOWN DOSE, AS NEEDED
     Dates: start: 20010810
  8. FLURBIPROFEN [Concomitant]
     Indication: RHEUMATOID ARTHRITIS
     Dosage: UNKNOWN DOSE, AS NEEDED
     Dates: start: 20020401
  9. ANTI-HISTAMINE TAB [Concomitant]
     Indication: RHINITIS ALLERGIC
     Route: 048
     Dates: start: 20021106
  10. ZANTAC [Concomitant]
     Indication: PROPHYLAXIS
     Dosage: UNKNOWN DOSE, AS NEEDED
     Route: 048
     Dates: start: 20020503
  11. TOCOPHEROL CONCENTRATE CAP [Concomitant]
     Indication: CARPAL TUNNEL SYNDROME
     Route: 048
     Dates: start: 20040204
  12. POVIDONE IODINE [Concomitant]
     Indication: INFECTION PROPHYLAXIS
     Dosage: ^ADEQUATE DOSE^ AT UNKNOWN FREQUENCY
     Dates: start: 20020212
  13. LACTOBACILLUS ACIDOPHILUS [Concomitant]
     Indication: ABDOMINAL DISTENSION
     Dosage: 1 GRAM AT UNKNOWN FREQUENCY
     Route: 048
     Dates: start: 20040512, end: 20040618
  14. UNSPECIFIED TOPICAL PRODUCT [Concomitant]
     Indication: ECZEMA
     Dosage: UNKNOWN DOSE, AS NEEDED
     Route: 061
     Dates: start: 20050209, end: 20050618

REACTIONS (4)
  - AUTOIMMUNE HEPATITIS [None]
  - BILIARY CIRRHOSIS [None]
  - HEPATITIS ACUTE [None]
  - HEPATITIS VIRAL [None]
